FAERS Safety Report 8307391-X (Version None)
Quarter: 2012Q2

REPORT INFORMATION
  Report Type: 
  Country: None (occurrence: None)
  Receive Date: 20120419
  Receipt Date: 20120403
  Transmission Date: 20120825
  Serious: Yes (Death)
  Sender: FDA-Public Use
  Company Number: 2012P1012092

PATIENT
  Sex: Female

DRUGS (1)
  1. MINITRAN [Suspect]
     Indication: BONE DENSITY ABNORMAL
     Dosage: 15 MG;QHS;TOP
     Route: 061

REACTIONS (1)
  - CEREBROVASCULAR ACCIDENT [None]
